FAERS Safety Report 8374440-2 (Version None)
Quarter: 2012Q2

REPORT INFORMATION
  Report Type: 
  Country: None (occurrence: None)
  Receive Date: 20120521
  Receipt Date: 20120507
  Transmission Date: 20120825
  Serious: Yes (Other)
  Sender: FDA-Public Use
  Company Number: CA-JNJFOC-20120508780

PATIENT
  Sex: Female
  Weight: 151.96 kg

DRUGS (16)
  1. FOLIC ACID [Concomitant]
     Route: 065
  2. AMERGE [Concomitant]
     Indication: MIGRAINE
     Route: 065
  3. ZOPICLONE [Concomitant]
     Indication: SLEEP DISORDER THERAPY
     Route: 065
  4. MICARDIS [Concomitant]
     Indication: HYPERTENSION
     Route: 065
  5. SPIRONOLACTONE [Concomitant]
     Indication: HYPERTENSION
     Route: 065
  6. EPIPEN [Concomitant]
     Indication: MULTIPLE ALLERGIES
     Route: 065
  7. SYNTHROID [Concomitant]
     Indication: HYPOTHYROIDISM
     Dosage: 0.15 (UNITS UNSPECIFIED)
     Route: 065
  8. NEXIUM [Concomitant]
     Indication: GASTROOESOPHAGEAL REFLUX DISEASE
     Route: 065
  9. ZOLOFT [Concomitant]
     Indication: DEPRESSION
     Route: 065
  10. REMICADE [Suspect]
     Indication: SARCOIDOSIS
     Route: 042
     Dates: start: 20110518
  11. CRESTOR [Concomitant]
     Indication: BLOOD CHOLESTEROL INCREASED
     Route: 065
  12. METHOTREXATE [Concomitant]
     Route: 058
  13. NITROGLYCERIN [Concomitant]
     Route: 065
  14. BRIMONIDINE TARTRATE [Concomitant]
     Indication: GLAUCOMA
     Route: 061
  15. ALBUTEROL [Concomitant]
     Route: 045
  16. PREDNISONE [Concomitant]
     Route: 061

REACTIONS (1)
  - THROMBOPHLEBITIS MIGRANS [None]
